FAERS Safety Report 18663807 (Version 1)
Quarter: 2020Q4

REPORT INFORMATION
  Report Type: Spontaneous
  Country: RO (occurrence: RO)
  Receive Date: 20201225
  Receipt Date: 20201225
  Transmission Date: 20210114
  Serious: Yes (Death, Hospitalization, Disabling)
  Sender: FDA-Public Use
  Company Number: RO-ABBVIE-20K-135-3705965-00

PATIENT
  Age: 60 Year
  Sex: Male

DRUGS (1)
  1. VENCLYXTO [Suspect]
     Active Substance: VENETOCLAX
     Indication: CHRONIC LYMPHOCYTIC LEUKAEMIA
     Route: 048
     Dates: start: 202002, end: 20201211

REACTIONS (6)
  - Death [Fatal]
  - Visual acuity reduced [Unknown]
  - Neutropenia [Unknown]
  - Muscular weakness [Unknown]
  - Dyskinesia [Unknown]
  - Transient ischaemic attack [Unknown]

NARRATIVE: CASE EVENT DATE: 2020
